FAERS Safety Report 23280376 (Version 2)
Quarter: 2023Q4

REPORT INFORMATION
  Report Type: Other
  Country: DE (occurrence: None)
  Receive Date: 20231210
  Receipt Date: 20231229
  Transmission Date: 20240110
  Serious: Yes (Hospitalization)
  Sender: FDA-Public Use
  Company Number: DE-ROCHE-3082013

PATIENT
  Age: 37 Year
  Sex: Female

DRUGS (8)
  1. OCREVUS [Suspect]
     Active Substance: OCRELIZUMAB
     Indication: Relapsing-remitting multiple sclerosis
     Dosage: IN 196 DAYS
     Route: 042
     Dates: start: 20210908
  2. ATOMOXETINE [Suspect]
     Active Substance: ATOMOXETINE
     Indication: Product used for unknown indication
     Route: 065
  3. BUPROPION HYDROCHLORIDE [Concomitant]
     Active Substance: BUPROPION HYDROCHLORIDE
  4. CETIRIZINE [Concomitant]
     Active Substance: CETIRIZINE HYDROCHLORIDE
     Dosage: IN THE EVENING PRIOR TO THE INFUSION
  5. ACETAMINOPHEN [Concomitant]
     Active Substance: ACETAMINOPHEN
  6. VITAMIN D3 [Concomitant]
     Active Substance: CHOLECALCIFEROL
  7. ESOMEPRAZOLE [Concomitant]
     Active Substance: ESOMEPRAZOLE
  8. PREGABALIN [Concomitant]
     Active Substance: PREGABALIN

REACTIONS (19)
  - Fatigue [Recovered/Resolved]
  - Headache [Recovered/Resolved]
  - Oropharyngeal pain [Recovered/Resolved]
  - Dyspnoea [Recovered/Resolved]
  - Dizziness [Recovered/Resolved]
  - Leukopenia [Recovered/Resolved]
  - Cardiovascular disorder [Unknown]
  - Agoraphobia [Recovered/Resolved]
  - Arthralgia [Recovering/Resolving]
  - Gastritis [Recovering/Resolving]
  - Gastrooesophageal sphincter insufficiency [Recovering/Resolving]
  - Vitamin D deficiency [Not Recovered/Not Resolved]
  - Perioral dermatitis [Recovered/Resolved]
  - Fatigue [Recovered/Resolved]
  - Constipation [Not Recovered/Not Resolved]
  - Pneumonia [Recovered/Resolved]
  - Alopecia [Not Recovered/Not Resolved]
  - Uterine leiomyoma [Not Recovered/Not Resolved]
  - Cough [Not Recovered/Not Resolved]

NARRATIVE: CASE EVENT DATE: 20210908
